FAERS Safety Report 25889218 (Version 1)
Quarter: 2025Q4

REPORT INFORMATION
  Report Type: Spontaneous
  Country: EU (occurrence: EU)
  Receive Date: 20251007
  Receipt Date: 20251007
  Transmission Date: 20260117
  Serious: Yes (Hospitalization)
  Sender: ACCORD
  Company Number: EU-MLMSERVICE-20250918-PI649618-00219-1

PATIENT
  Age: 67 Year
  Sex: Male

DRUGS (2)
  1. METHYLPHENIDATE HYDROCHLORIDE [Suspect]
     Active Substance: METHYLPHENIDATE HYDROCHLORIDE
     Indication: Depression
  2. DIAZEPAM [Concomitant]
     Active Substance: DIAZEPAM
     Indication: Depression

REACTIONS (1)
  - Hepatitis cholestatic [Recovering/Resolving]
